FAERS Safety Report 18537048 (Version 1)
Quarter: 2020Q4

REPORT INFORMATION
  Report Type: Spontaneous
  Country: US (occurrence: US)
  Receive Date: 20201123
  Receipt Date: 20201123
  Transmission Date: 20210114
  Serious: No
  Sender: FDA-Public Use
  Company Number: US-PERRIGO-20US000739

PATIENT
  Age: 61 Year
  Sex: Male
  Weight: 122.9 kg

DRUGS (2)
  1. POLYETHYLENE GLYCOL 3350. [Suspect]
     Active Substance: POLYETHYLENE GLYCOL 3350
     Indication: DYSPEPSIA
     Dosage: 232.5 G, PRN
     Route: 048
     Dates: start: 2009, end: 2019
  2. POLYETHYLENE GLYCOL 3350. [Suspect]
     Active Substance: POLYETHYLENE GLYCOL 3350
     Indication: BOWEL PREPARATION
     Dosage: 232.5 G, SINGLE
     Route: 048
     Dates: start: 20200116, end: 20200116

REACTIONS (3)
  - Drug effective for unapproved indication [Unknown]
  - Weight decreased [Not Recovered/Not Resolved]
  - Overdose [Recovered/Resolved]

NARRATIVE: CASE EVENT DATE: 2009
